FAERS Safety Report 4969196-7 (Version None)
Quarter: 2006Q2

REPORT INFORMATION
  Report Type: 
  Country: None (occurrence: None)
  Receive Date: 20060411
  Receipt Date: 20060207
  Transmission Date: 20061013
  Serious: No
  Sender: FDA-Public Use
  Company Number: US-BRISTOL-MYERS SQUIBB COMPANY-13279138

PATIENT
  Sex: Female

DRUGS (5)
  1. PARAPLATIN [Suspect]
     Indication: NON-SMALL CELL LUNG CANCER
     Dates: start: 20060207
  2. PACLITAXEL [Concomitant]
  3. LORAZEPAM [Concomitant]
  4. DIPHENHYDRAMINE [Concomitant]
  5. DEXAMETHASONE [Concomitant]

REACTIONS (3)
  - DIZZINESS [None]
  - FEELING HOT [None]
  - FLUSHING [None]
